FAERS Safety Report 7775259-3 (Version None)
Quarter: 2011Q3

REPORT INFORMATION
  Report Type: 
  Country: None (occurrence: None)
  Receive Date: 20110923
  Receipt Date: 20110921
  Transmission Date: 20111222
  Serious: Yes (Death)
  Sender: FDA-Public Use
  Company Number: BE-ABBOTT-11P-013-0850288-00

PATIENT
  Sex: Male

DRUGS (3)
  1. ESTRACYT [Concomitant]
     Indication: PROSTATE CANCER
     Dosage: 4 TABS DAILY
     Route: 048
     Dates: start: 20060526, end: 20061020
  2. LEUPROLIDE ACETATE [Suspect]
     Indication: PROSTATE CANCER
     Dates: start: 20050204, end: 20060526
  3. BICALUTAMIDE [Concomitant]
     Indication: PRODUCT USED FOR UNKNOWN INDICATION
     Dates: start: 20050204, end: 20060526

REACTIONS (2)
  - RENAL FAILURE [None]
  - PROSTATE CANCER [None]
